FAERS Safety Report 8169138-X (Version None)
Quarter: 2012Q1

REPORT INFORMATION
  Report Type: 
  Country: None (occurrence: None)
  Receive Date: 20120227
  Receipt Date: 20120222
  Transmission Date: 20120608
  Serious: Yes (Hospitalization)
  Sender: FDA-Public Use
  Company Number: JP-ROCHE-1042940

PATIENT
  Age: 76 Year
  Sex: Male

DRUGS (15)
  1. PREDNISOLONE [Concomitant]
     Indication: RHEUMATOID ARTHRITIS
     Route: 048
     Dates: end: 20090421
  2. FAMOTIDINE [Concomitant]
     Indication: PROPHYLAXIS
     Route: 048
  3. ACTEMRA [Suspect]
     Route: 041
     Dates: start: 20090617, end: 20090617
  4. ACTEMRA [Suspect]
     Route: 041
     Dates: start: 20100513, end: 20110124
  5. PREDNISOLONE [Concomitant]
     Route: 048
     Dates: start: 20090422
  6. PREDNISOLONE [Concomitant]
     Dosage: UNCERTAIN DOSAGE (LESS THAN 5MG/DAY)
     Route: 048
  7. LORFENAMIN [Concomitant]
     Indication: RHEUMATOID ARTHRITIS
     Route: 048
  8. LIPIDIL [Concomitant]
     Indication: HYPERLIPIDAEMIA
     Route: 048
  9. ACTEMRA [Suspect]
     Indication: RHEUMATOID ARTHRITIS
     Route: 041
     Dates: start: 20090422, end: 20090422
  10. ACTEMRA [Suspect]
     Route: 041
     Dates: start: 20090722, end: 20090722
  11. SELBEX [Concomitant]
     Indication: PROPHYLAXIS
     Route: 048
  12. NORVASC [Concomitant]
     Indication: HYPERTENSION
     Route: 048
  13. ACTEMRA [Suspect]
     Route: 041
     Dates: start: 20090520, end: 20090520
  14. DIOVAN [Concomitant]
     Indication: HYPERTENSION
     Route: 048
  15. AMLODIPINE [Concomitant]
     Indication: HYPERTENSION
     Route: 048

REACTIONS (1)
  - MESENTERIC PANNICULITIS [None]
